FAERS Safety Report 14182952 (Version 2)
Quarter: 2017Q4

REPORT INFORMATION
  Report Type: Spontaneous
  Country: BR (occurrence: BR)
  Receive Date: 20171113
  Receipt Date: 20171205
  Transmission Date: 20180321
  Serious: Yes (Other)
  Sender: FDA-Public Use
  Company Number: BR-GLAXOSMITHKLINE-BR2017GSK172348

PATIENT
  Age: 16 Year
  Sex: Male
  Weight: 52 kg

DRUGS (3)
  1. ANTAK [Suspect]
     Active Substance: RANITIDINE HYDROCHLORIDE
     Indication: PRODUCT USED FOR UNKNOWN INDICATION
     Dosage: 50 MG, UNK
  2. BUSCOPAN (SCOPOLAMINE BUTYLBROMIDE) [Suspect]
     Active Substance: BUTYLSCOPOLAMINE BROMIDE
     Indication: PRODUCT USED FOR UNKNOWN INDICATION
     Dosage: 5 ML, UNK
     Dates: start: 20170328
  3. DRAMIN B-6 DL [Suspect]
     Active Substance: DEXTROSE\DIMENHYDRINATE\FRUCTOSE\PYRIDOXINE
     Indication: PRODUCT USED FOR UNKNOWN INDICATION
     Dosage: UNK
     Dates: start: 20170328

REACTIONS (9)
  - Diarrhoea [Recovered/Resolved]
  - Pallor [Recovered/Resolved]
  - Feeling cold [Unknown]
  - Dyskinesia [Recovered/Resolved]
  - Vomiting [Recovered/Resolved]
  - Abdominal pain [Recovered/Resolved]
  - Muscle spasms [Recovered/Resolved]
  - Hypothermia [Recovered/Resolved]
  - Seizure like phenomena [Unknown]

NARRATIVE: CASE EVENT DATE: 20170328
